APPROVED DRUG PRODUCT: METHYLENE BLUE
Active Ingredient: METHYLENE BLUE
Strength: 50MG/10ML (5MG/ML)
Dosage Form/Route: SOLUTION;INTRAVENOUS
Application: A215636 | Product #002 | TE Code: AP
Applicant: ZYDUS LIFESCIENCES GLOBAL FZE
Approved: Dec 5, 2023 | RLD: No | RS: No | Type: RX